FAERS Safety Report 6435253-1 (Version None)
Quarter: 2009Q4

REPORT INFORMATION
  Report Type: 
  Country: None (occurrence: None)
  Receive Date: 20091110
  Receipt Date: 20091030
  Transmission Date: 20100525
  Serious: Yes (Other)
  Sender: FDA-Public Use
  Company Number: US-ELI_LILLY_AND_COMPANY-US_000848083

PATIENT
  Sex: Male
  Weight: 15.955 kg

DRUGS (4)
  1. HUMATROPE [Suspect]
     Indication: HYPOTHALAMO-PITUITARY DISORDER
     Dosage: 0.3 MG, 6/W
     Route: 058
     Dates: start: 19991108, end: 20050418
  2. HUMATROPE [Suspect]
     Dosage: UNK, UNKNOWN
  3. LEVOXYL [Concomitant]
     Indication: HYPOTHYROIDISM
     Dosage: 25 UG, DAILY (1/D)
     Route: 048
     Dates: start: 19990601
  4. CORTEF                             /00028604/ [Concomitant]
     Indication: ADRENAL INSUFFICIENCY
     Dosage: 6.25 MG, DAILY (1/D)
     Route: 048
     Dates: start: 19990601

REACTIONS (7)
  - ABDOMINAL PAIN [None]
  - BENIGN INTRACRANIAL HYPERTENSION [None]
  - CONSTIPATION [None]
  - DIARRHOEA [None]
  - GYNAECOMASTIA [None]
  - HALLUCINATION [None]
  - THYMUS DISORDER [None]
